FAERS Safety Report 7245508-9 (Version None)
Quarter: 2011Q1

REPORT INFORMATION
  Report Type: 
  Country: None (occurrence: None)
  Receive Date: 20110126
  Receipt Date: 20110121
  Transmission Date: 20110831
  Serious: Yes (Other)
  Sender: FDA-Public Use
  Company Number: US-ABBOTT-11P-163-0695794-00

PATIENT
  Sex: Male
  Weight: 80.812 kg

DRUGS (11)
  1. PREVACID [Concomitant]
     Indication: PRODUCT USED FOR UNKNOWN INDICATION
  2. ELAVIL [Concomitant]
     Indication: PRODUCT USED FOR UNKNOWN INDICATION
     Dosage: AT BEDTIME
  3. EQUATE STOOL SOFTNER [Concomitant]
     Indication: PRODUCT USED FOR UNKNOWN INDICATION
  4. NITROGLYCERIN [Concomitant]
     Indication: HYPOAESTHESIA
  5. HUMIRA [Suspect]
     Route: 058
  6. ATENOLOL [Concomitant]
     Indication: BLOOD PRESSURE
  7. IRON [Concomitant]
     Indication: PRODUCT USED FOR UNKNOWN INDICATION
  8. HUMIRA [Suspect]
     Indication: CROHN'S DISEASE
     Dosage: 2 PEN DAY 1, 2 PENS DAY 2 LOADING DOSES
     Dates: start: 20101229
  9. NORCO [Concomitant]
     Indication: PRODUCT USED FOR UNKNOWN INDICATION
     Dosage: PAIN 1-2 Q 4-6 HRS PHANTOM PAIN
  10. NORVASC [Concomitant]
     Indication: BLOOD PRESSURE
  11. TRAZODONE HCL [Concomitant]
     Indication: PRODUCT USED FOR UNKNOWN INDICATION
     Dosage: AS REQUIRED AT BEDTIME

REACTIONS (7)
  - HEADACHE [None]
  - ABDOMINAL PAIN [None]
  - VOMITING [None]
  - PULMONARY EMBOLISM [None]
  - SKIN DISCOLOURATION [None]
  - BODY TEMPERATURE INCREASED [None]
  - PARAESTHESIA [None]
